FAERS Safety Report 23503633 (Version 1)
Quarter: 2024Q1

REPORT INFORMATION
  Report Type: Spontaneous
  Country: DE (occurrence: DE)
  Receive Date: 20240208
  Receipt Date: 20240208
  Transmission Date: 20240410
  Serious: Yes (Other)
  Sender: FDA-Public Use
  Company Number: DE-ALKEM LABORATORIES LIMITED-DE-ALKEM-2023-09690

PATIENT
  Age: 24 Year
  Sex: Female

DRUGS (3)
  1. CEPHALEXIN [Suspect]
     Active Substance: CEPHALEXIN
     Indication: Product used for unknown indication
     Dosage: UNK (CONTAINS PEG 6000)
     Route: 065
  2. AMBROXOL HYDROCHLORIDE [Suspect]
     Active Substance: AMBROXOL HYDROCHLORIDE
     Indication: Product used for unknown indication
     Dosage: UNK (COUGH LOZENGE, CONTAINS PEG 6000)
     Route: 065
  3. METAMIZOLE [Suspect]
     Active Substance: METAMIZOLE
     Indication: Product used for unknown indication
     Dosage: UNK (CONTAINS PEG 4000 AND PEG 8000)
     Route: 065

REACTIONS (5)
  - Type I hypersensitivity [Unknown]
  - Hypotension [Unknown]
  - Headache [Unknown]
  - Nausea [Unknown]
  - Urticaria [Unknown]
